FAERS Safety Report 23994090 (Version 1)
Quarter: 2024Q2

REPORT INFORMATION
  Report Type: Spontaneous
  Country: US (occurrence: None)
  Receive Date: 20240618
  Receipt Date: 20240618
  Transmission Date: 20240717
  Serious: Yes (Death)
  Sender: FDA-Public Use
  Company Number: None

PATIENT
  Sex: Female

DRUGS (3)
  1. LENALIDOMIDE [Suspect]
     Active Substance: LENALIDOMIDE
     Indication: Plasma cell myeloma
     Dosage: OTHER FREQUENCY : QD 21D, OFF 7DAY;?
     Route: 048
     Dates: start: 20220609
  2. LASIX [Concomitant]
     Active Substance: FUROSEMIDE
  3. TYLENOL [Concomitant]

REACTIONS (1)
  - Death [None]
